FAERS Safety Report 13097462 (Version 1)
Quarter: 2017Q1

REPORT INFORMATION
  Report Type: Spontaneous
  Country: US (occurrence: US)
  Receive Date: 20170108
  Receipt Date: 20170108
  Transmission Date: 20170428
  Serious: Yes (Hospitalization)
  Sender: FDA-Public Use
  Company Number: None

PATIENT
  Age: 51 Year
  Sex: Female
  Weight: 74.25 kg

DRUGS (13)
  1. TIROSINT [Concomitant]
     Active Substance: LEVOTHYROXINE SODIUM
  2. PROBIOTICS DYES [Concomitant]
  3. TROKENDI XR [Suspect]
     Active Substance: TOPIRAMATE
     Indication: EPILEPSY
     Dosage: ?          QUANTITY:30 CAPSULE(S);?
     Route: 048
  4. VITAMIN D [Concomitant]
     Active Substance: CHOLECALCIFEROL
  5. MAGNESIUM [Concomitant]
     Active Substance: MAGNESIUM
  6. VITAMIN A [Concomitant]
     Active Substance: VITAMIN A
  7. BIOTIN [Concomitant]
     Active Substance: BIOTIN
  8. VITAMIN C [Concomitant]
     Active Substance: ASCORBIC ACID
  9. PROTEOLYTIC ENZYMES [Concomitant]
  10. VITAMIN B12 [Concomitant]
     Active Substance: CYANOCOBALAMIN
  11. PROBIOTIC [Concomitant]
     Active Substance: PROBIOTICS NOS
  12. VITAMINS K [Concomitant]
  13. VITAMIN E [Concomitant]
     Active Substance: .ALPHA.-TOCOPHEROL

REACTIONS (17)
  - Road traffic accident [None]
  - Aphasia [None]
  - Soft tissue disorder [None]
  - Tendon rupture [None]
  - Sensory disturbance [None]
  - Tendon disorder [None]
  - Paranoia [None]
  - Memory impairment [None]
  - Suicidal ideation [None]
  - Spondylolysis [None]
  - Anxiety [None]
  - Anger [None]
  - Arthralgia [None]
  - Dry eye [None]
  - Dry throat [None]
  - Depression [None]
  - Product substitution issue [None]

NARRATIVE: CASE EVENT DATE: 20170107
